FAERS Safety Report 14738151 (Version 1)
Quarter: 2018Q2

REPORT INFORMATION
  Report Type: Spontaneous
  Country: US (occurrence: US)
  Receive Date: 20180409
  Receipt Date: 20180409
  Transmission Date: 20180711
  Serious: Yes (Hospitalization)
  Sender: FDA-Public Use
  Company Number: US-BEH-2018089400

PATIENT
  Age: 47 Year
  Sex: Female
  Weight: 106.12 kg

DRUGS (42)
  1. PROMETHAZINE [Concomitant]
     Active Substance: PROMETHAZINE\PROMETHAZINE HYDROCHLORIDE
  2. BACLOFEN. [Concomitant]
     Active Substance: BACLOFEN
  3. HYDROMET                           /00112601/ [Concomitant]
  4. BYDUREON [Concomitant]
     Active Substance: EXENATIDE
  5. MAGNESIUM [Concomitant]
     Active Substance: MAGNESIUM
  6. LIDOCAINE/PRILOCAINE [Concomitant]
     Active Substance: LIDOCAINE\PRILOCAINE
  7. CARTIA XT [Concomitant]
     Active Substance: DILTIAZEM HYDROCHLORIDE
  8. DULCOLAX (BISACODYL) [Concomitant]
     Active Substance: BISACODYL
  9. CLINDAMYCIN. [Concomitant]
     Active Substance: CLINDAMYCIN
  10. TRAMADOL. [Concomitant]
     Active Substance: TRAMADOL
  11. FLUTICASONE FUROATE [Concomitant]
     Active Substance: FLUTICASONE FUROATE
  12. LIPITOR [Concomitant]
     Active Substance: ATORVASTATIN CALCIUM
  13. UROCIT-K [Concomitant]
     Active Substance: POTASSIUM CITRATE
  14. HIZENTRA [Suspect]
     Active Substance: HUMAN IMMUNOGLOBULIN G
     Indication: IMMUNODEFICIENCY COMMON VARIABLE
     Dosage: 12 G, UNK
     Route: 058
     Dates: start: 20130221
  15. HIZENTRA [Suspect]
     Active Substance: HUMAN IMMUNOGLOBULIN G
     Dosage: UNK
     Route: 058
  16. HYDROCODONE BITARTRATE AND ACETAMINOPHEN [Concomitant]
     Active Substance: ACETAMINOPHEN\HYDROCODONE BITARTRATE
  17. BENZONATATE. [Concomitant]
     Active Substance: BENZONATATE
  18. DIPHENHYDRAMINE. [Concomitant]
     Active Substance: DIPHENHYDRAMINE
  19. MIRAPEX [Concomitant]
     Active Substance: PRAMIPEXOLE DIHYDROCHLORIDE
  20. ALBUTEROL SULFATE. [Concomitant]
     Active Substance: ALBUTEROL SULFATE
  21. FLAGYL [Concomitant]
     Active Substance: METRONIDAZOLE\METRONIDAZOLE HYDROCHLORIDE
  22. CEFTIN [Concomitant]
     Active Substance: CEFUROXIME AXETIL
  23. HUMALOG [Concomitant]
     Active Substance: INSULIN LISPRO
  24. ALLOPURINOL. [Concomitant]
     Active Substance: ALLOPURINOL
  25. OMEPRAZOL                          /00661201/ [Concomitant]
     Active Substance: OMEPRAZOLE
  26. HIZENTRA [Suspect]
     Active Substance: HUMAN IMMUNOGLOBULIN G
     Dosage: UNK
     Route: 058
  27. AZITHROMYCIN ANHYDROUS. [Concomitant]
     Active Substance: AZITHROMYCIN ANHYDROUS
  28. EPINEPHRINE. [Concomitant]
     Active Substance: EPINEPHRINE
  29. BENAZEPRIL [Concomitant]
     Active Substance: BENAZEPRIL HYDROCHLORIDE
  30. ATORVASTATIN [Concomitant]
     Active Substance: ATORVASTATIN
  31. CARAFATE [Concomitant]
     Active Substance: SUCRALFATE
  32. GABAPENTIN. [Concomitant]
     Active Substance: GABAPENTIN
  33. NOVOLOG [Concomitant]
     Active Substance: INSULIN ASPART
  34. VITAMIN D3 [Concomitant]
     Active Substance: CHOLECALCIFEROL
  35. IPRATROPIUM BROMIDE AND ALBUTEROL SULFATE [Concomitant]
     Active Substance: ALBUTEROL SULFATE\IPRATROPIUM BROMIDE
  36. ACETAMINOPHEN. [Concomitant]
     Active Substance: ACETAMINOPHEN
  37. OMEGA 3                            /01333901/ [Concomitant]
     Active Substance: FISH OIL\TOCOPHEROL
  38. LEVAQUIN [Concomitant]
     Active Substance: LEVOFLOXACIN
  39. VENTOLIN [Concomitant]
     Active Substance: ALBUTEROL SULFATE
  40. METFORMIN [Concomitant]
     Active Substance: METFORMIN HYDROCHLORIDE
  41. BIOTIN [Concomitant]
     Active Substance: BIOTIN
  42. CETIRIZINE [Concomitant]
     Active Substance: CETIRIZINE HYDROCHLORIDE

REACTIONS (1)
  - Renal cancer [Unknown]

NARRATIVE: CASE EVENT DATE: 20180323
